FAERS Safety Report 10678285 (Version 1)
Quarter: 2014Q4

REPORT INFORMATION
  Report Type: Spontaneous
  Country: US (occurrence: None)
  Receive Date: 20141223
  Receipt Date: 20141223
  Transmission Date: 20150529
  Serious: Yes (Hospitalization, Other)
  Sender: FDA-Public Use
  Company Number: 54973 AE # 1586

PATIENT
  Age: 08 Month
  Sex: Male

DRUGS (1)
  1. BABY TEETHING [Suspect]
     Active Substance: ARABICA COFFEE BEAN\ATROPA BELLADONNA\CALCIUM PHOSPHATE\CHAMOMILE
     Indication: TEETHING
     Dosage: 2 TABS HS X 1 DOSE

REACTIONS (8)
  - Dehydration [None]
  - Loss of consciousness [None]
  - White blood cell count increased [None]
  - Infection [None]
  - Abnormal behaviour [None]
  - Vomiting [None]
  - Retching [None]
  - Lethargy [None]

NARRATIVE: CASE EVENT DATE: 20141115
